FAERS Safety Report 17468161 (Version 1)
Quarter: 2020Q1

REPORT INFORMATION
  Report Type: Spontaneous
  Country: US (occurrence: US)
  Receive Date: 20200227
  Receipt Date: 20200227
  Transmission Date: 20200409
  Serious: Yes (Other)
  Sender: FDA-Public Use
  Company Number: None

PATIENT
  Age: 48 Year
  Sex: Female

DRUGS (1)
  1. CARTIA XT [Suspect]
     Active Substance: DILTIAZEM HYDROCHLORIDE
     Indication: HYPERTENSION
     Dosage: ?          QUANTITY:1 CAPSULE(S);?
     Route: 048
     Dates: start: 20200217, end: 20200225

REACTIONS (8)
  - Product odour abnormal [None]
  - Therapeutic response changed [None]
  - Product substitution issue [None]
  - Heart rate increased [None]
  - Pulmonary congestion [None]
  - Malaise [None]
  - Product quality issue [None]
  - Blood pressure increased [None]

NARRATIVE: CASE EVENT DATE: 20200226
